FAERS Safety Report 16635677 (Version 1)
Quarter: 2019Q3

REPORT INFORMATION
  Report Type: Spontaneous
  Country: DE (occurrence: DE)
  Receive Date: 20190726
  Receipt Date: 20190726
  Transmission Date: 20191004
  Serious: Yes (Other)
  Sender: FDA-Public Use
  Company Number: DE-TEVA-2019-DE-1080099

PATIENT
  Age: 6 Decade
  Sex: Male

DRUGS (4)
  1. CANDECOR [Concomitant]
     Active Substance: CANDESARTAN CILEXETIL
  2. ASPIRIN. [Concomitant]
     Active Substance: ASPIRIN
  3. EZETIMIB ABZ 10 MG TABLETTEN [Suspect]
     Active Substance: EZETIMIBE
     Indication: BLOOD CHOLESTEROL INCREASED
     Route: 048
     Dates: start: 201807
  4. ROSUVASTATIN-RATIOPHARM 20 MG FILMTABLETTEN [Suspect]
     Active Substance: ROSUVASTATIN
     Indication: BLOOD CHOLESTEROL INCREASED
     Dosage: 10 MILLIGRAM DAILY;
     Route: 048
     Dates: start: 201807

REACTIONS (3)
  - Renal impairment [Not Recovered/Not Resolved]
  - Arthralgia [Not Recovered/Not Resolved]
  - Oedema peripheral [Not Recovered/Not Resolved]
